FAERS Safety Report 7771019-8 (Version None)
Quarter: 2011Q3

REPORT INFORMATION
  Report Type: 
  Country: None (occurrence: None)
  Receive Date: 20110922
  Receipt Date: 20110203
  Transmission Date: 20111222
  Serious: No
  Sender: FDA-Public Use
  Company Number: US-ASTRAZENECA-2010SE61336

PATIENT
  Age: 10194 Day
  Sex: Female
  Weight: 52.2 kg

DRUGS (5)
  1. SEROQUEL [Suspect]
     Route: 048
  2. EFFEXOR [Concomitant]
     Indication: DEPRESSION
  3. XANAX [Concomitant]
     Indication: ANXIETY
  4. SEROQUEL [Suspect]
     Indication: BIPOLAR DISORDER
     Route: 048
     Dates: start: 20100910, end: 20101226
  5. AMBIEN [Concomitant]
     Indication: SLEEP DISORDER

REACTIONS (7)
  - MALAISE [None]
  - INSOMNIA [None]
  - VOMITING [None]
  - INCORRECT DOSE ADMINISTERED [None]
  - DRUG WITHDRAWAL SYNDROME [None]
  - DRUG DOSE OMISSION [None]
  - FEELING OF BODY TEMPERATURE CHANGE [None]
